FAERS Safety Report 11946034 (Version 1)
Quarter: 2016Q1

REPORT INFORMATION
  Report Type: Report from Study
  Country: US (occurrence: US)
  Receive Date: 20160125
  Receipt Date: 20160125
  Transmission Date: 20160526
  Serious: No
  Sender: FDA-Public Use
  Company Number: US-AMGEN-USASL2015134302

PATIENT
  Age: 76 Year
  Sex: Female

DRUGS (2)
  1. REPATHA [Suspect]
     Active Substance: EVOLOCUMAB
     Indication: BLOOD CHOLESTEROL INCREASED
     Dosage: 140 MG, Q2WK
     Route: 065
     Dates: start: 20151206
  2. ZETIA [Concomitant]
     Active Substance: EZETIMIBE

REACTIONS (7)
  - Hypoaesthesia [Recovering/Resolving]
  - Muscular weakness [Recovering/Resolving]
  - Feeling abnormal [Recovering/Resolving]
  - Myalgia [Recovering/Resolving]
  - Insomnia [Recovering/Resolving]
  - Paraesthesia [Recovering/Resolving]
  - Pain in extremity [Not Recovered/Not Resolved]

NARRATIVE: CASE EVENT DATE: 20151212
